FAERS Safety Report 16989526 (Version 2)
Quarter: 2019Q4

REPORT INFORMATION
  Report Type: Spontaneous
  Country: CL (occurrence: CL)
  Receive Date: 20191104
  Receipt Date: 20191211
  Transmission Date: 20200122
  Serious: Yes (Other)
  Sender: FDA-Public Use
  Company Number: CL-PFIZER INC-2019469712

PATIENT
  Age: 75 Year
  Sex: Female

DRUGS (2)
  1. PRISTIQ EXTENDED-RELEASE [Suspect]
     Active Substance: DESVENLAFAXINE SUCCINATE
     Indication: DEPRESSION
     Dosage: 50 MG, 1X/DAY
     Dates: start: 2013
  2. TAXUS [TAMOXIFEN CITRATE] [Concomitant]
     Indication: NEOPLASM MALIGNANT
     Dosage: 20 MG, UNK

REACTIONS (5)
  - Visual impairment [Unknown]
  - Fall [Unknown]
  - Poor quality product administered [Unknown]
  - Product quality issue [Unknown]
  - Chest injury [Unknown]
